FAERS Safety Report 19066208 (Version 6)
Quarter: 2021Q4

REPORT INFORMATION
  Report Type: Spontaneous
  Country: US (occurrence: US)
  Receive Date: 20210328
  Receipt Date: 20211110
  Transmission Date: 20220303
  Serious: No
  Sender: FDA-Public Use
  Company Number: US-SA-SAC20210325000936

PATIENT
  Age: 57 Year
  Sex: Female

DRUGS (1)
  1. DUPIXENT [Suspect]
     Active Substance: DUPILUMAB
     Indication: Dermatitis atopic
     Dosage: 300 MG, QOW
     Route: 058
     Dates: start: 20210203

REACTIONS (9)
  - Alopecia [Unknown]
  - Vision blurred [Unknown]
  - Groin pain [Recovering/Resolving]
  - Visual impairment [Unknown]
  - Hyperhidrosis [Unknown]
  - Blood pressure increased [Recovered/Resolved]
  - Eye irritation [Unknown]
  - Rash [Unknown]
  - Dry eye [Unknown]

NARRATIVE: CASE EVENT DATE: 20210101
